FAERS Safety Report 22526555 (Version 1)
Quarter: 2023Q2

REPORT INFORMATION
  Report Type: Spontaneous
  Country: CN (occurrence: CN)
  Receive Date: 20230606
  Receipt Date: 20230606
  Transmission Date: 20230722
  Serious: Yes (Hospitalization, Other)
  Sender: FDA-Public Use
  Company Number: CN-009507513-2306CHN001528

PATIENT
  Sex: Male

DRUGS (5)
  1. KEYTRUDA [Suspect]
     Active Substance: PEMBROLIZUMAB
     Indication: Squamous cell carcinoma of lung
     Dosage: 200 MG, Q3W
     Route: 041
     Dates: start: 20230324, end: 20230415
  2. PACLITAXEL [Concomitant]
     Active Substance: PACLITAXEL
     Indication: Squamous cell carcinoma of lung
     Dosage: 270 MILLIGRAM
     Dates: start: 20230324
  3. PACLITAXEL [Concomitant]
     Active Substance: PACLITAXEL
     Dosage: 240 MILLIGRAM
     Dates: start: 20230415
  4. CARBOPLATIN [Concomitant]
     Active Substance: CARBOPLATIN
     Indication: Squamous cell carcinoma of lung
     Dosage: 550 MILLIGRAM
     Dates: start: 20230324
  5. CARBOPLATIN [Concomitant]
     Active Substance: CARBOPLATIN
     Dosage: 450 MILLIGRAM
     Dates: start: 20230415

REACTIONS (4)
  - Immune-mediated lung disease [Recovering/Resolving]
  - Myelosuppression [Unknown]
  - Inappropriate schedule of product administration [Unknown]
  - Therapy partial responder [Unknown]

NARRATIVE: CASE EVENT DATE: 20230101
